FAERS Safety Report 19722847 (Version 2)
Quarter: 2021Q4

REPORT INFORMATION
  Report Type: Report from Study
  Country: DE (occurrence: DE)
  Receive Date: 20210820
  Receipt Date: 20211202
  Transmission Date: 20220303
  Serious: Yes (Hospitalization)
  Sender: FDA-Public Use
  Company Number: DE-ABBVIE-21K-062-4044541-00

PATIENT
  Age: 35 Year
  Sex: Female

DRUGS (8)
  1. HUMIRA [Suspect]
     Active Substance: ADALIMUMAB
     Indication: Axial spondyloarthritis
     Route: 058
     Dates: start: 20191010, end: 20200508
  2. HUMIRA [Suspect]
     Active Substance: ADALIMUMAB
     Route: 058
     Dates: start: 20200618, end: 20210429
  3. IBUPROFEN [Concomitant]
     Active Substance: IBUPROFEN
     Indication: Product used for unknown indication
     Dates: start: 20180326, end: 20181029
  4. IBUPROFEN [Concomitant]
     Active Substance: IBUPROFEN
     Dosage: END DATE BETWEEN 01 MAR 2021-16 JUN 2021
     Dates: start: 20190415, end: 2021
  5. IBUPROFEN [Concomitant]
     Active Substance: IBUPROFEN
     Dosage: START DATE BETWEEN 01 MAR 2021-16 JUN 2021?END DATE BETWEEN 01 MAR 2021-27 MAY 2021
     Dates: start: 2021, end: 2021
  6. IBUPROFEN [Concomitant]
     Active Substance: IBUPROFEN
     Dates: start: 20210512
  7. SULFASALAZINE DELAYED-RELEASE [Concomitant]
     Active Substance: SULFASALAZINE
     Indication: Product used for unknown indication
     Dosage: END DATE BETWEEN 01 MAR 2021-16 JUN 2021
     Dates: start: 20150201, end: 2021
  8. SULFASALAZINE DELAYED-RELEASE [Concomitant]
     Active Substance: SULFASALAZINE
     Dates: start: 20210301

REACTIONS (2)
  - Anal fissure [Recovered/Resolved]
  - Anal abscess [Recovered/Resolved]

NARRATIVE: CASE EVENT DATE: 20210512
